FAERS Safety Report 20059517 (Version 1)
Quarter: 2021Q4

REPORT INFORMATION
  Report Type: Spontaneous
  Country: DE (occurrence: DE)
  Receive Date: 20211111
  Receipt Date: 20211111
  Transmission Date: 20220303
  Serious: Yes (Other)
  Sender: FDA-Public Use
  Company Number: DE-PFIZER INC-202100991760

PATIENT
  Age: 47 Year
  Sex: Female
  Weight: 84 kg

DRUGS (5)
  1. ZIPRASIDONE [Suspect]
     Active Substance: ZIPRASIDONE
     Indication: Product used for unknown indication
     Dosage: 1 DOSAGE FORM, QD, 1 DF (CAPSULE), DAILY
     Dates: start: 201507, end: 202101
  2. DULOXETINE HYDROCHLORIDE [Suspect]
     Active Substance: DULOXETINE HYDROCHLORIDE
     Indication: Product used for unknown indication
     Dosage: 1 DOSAGE FORM, QD,1 DF, (CAPSULE) DAILY
     Dates: start: 20200722, end: 202012
  3. ZOPICLONE [Concomitant]
     Active Substance: ZOPICLONE
     Dosage: 1 DOSAGE FORM,1 DF, AS NEEDED
     Dates: start: 202008, end: 202012
  4. VERAPAMIL HYDROCHLORIDE [Concomitant]
     Active Substance: VERAPAMIL HYDROCHLORIDE
     Dosage: UNK (TABLETS, 2X/DAY)
     Dates: start: 201705
  5. SPASMEX                            /00376202/ [Concomitant]
     Dosage: 1 DOSAGE FORM, QD (1 TABLET, DAILY)
     Dates: start: 201902

REACTIONS (4)
  - Electrocardiogram QT prolonged [Recovered/Resolved]
  - Food craving [Recovered/Resolved]
  - Nausea [Recovered/Resolved]
  - Insomnia [Recovered/Resolved]

NARRATIVE: CASE EVENT DATE: 20200817
